FAERS Safety Report 7546312-4 (Version None)
Quarter: 2011Q2

REPORT INFORMATION
  Report Type: 
  Country: None (occurrence: None)
  Receive Date: 20110614
  Receipt Date: 20110610
  Transmission Date: 20111010
  Serious: Yes (Other)
  Sender: FDA-Public Use
  Company Number: JP-PFIZER INC-2011127825

PATIENT
  Age: 95 Year
  Sex: Female

DRUGS (6)
  1. LYRICA [Suspect]
     Indication: SCIATICA
     Dosage: 75 MG, 1X/DAY
     Route: 048
     Dates: start: 20110319, end: 20110329
  2. VALSARTAN [Concomitant]
     Indication: HYPERTENSION
     Dosage: 80 MG/DAY
     Route: 048
     Dates: start: 20100830
  3. TRICHLORMETHIAZIDE [Concomitant]
     Indication: HYPERTENSION
     Dosage: 2 MG/DAY
     Route: 048
     Dates: start: 20100830
  4. VESICARE [Concomitant]
     Indication: HYPERTONIC BLADDER
     Dosage: 5 MG/DAY
     Route: 048
     Dates: start: 20100913
  5. LIVALO [Concomitant]
     Indication: HYPERLIPIDAEMIA
     Dosage: 1 MG/DAY
     Route: 048
     Dates: start: 20100830
  6. LANSOPRAZOLE [Concomitant]
     Indication: REFLUX OESOPHAGITIS
     Dosage: 30 MG/DAY
     Route: 048
     Dates: start: 20101016

REACTIONS (3)
  - TRANSIENT ISCHAEMIC ATTACK [None]
  - DIZZINESS [None]
  - LOSS OF CONSCIOUSNESS [None]
